FAERS Safety Report 9323408 (Version 1)
Quarter: 2013Q2

REPORT INFORMATION
  Report Type: Spontaneous
  Country: ES (occurrence: ES)
  Receive Date: 20130603
  Receipt Date: 20130603
  Transmission Date: 20140414
  Serious: Yes (Hospitalization)
  Sender: FDA-Public Use
  Company Number: ES-ROCHE-1231577

PATIENT
  Age: 69 Year
  Sex: Male

DRUGS (1)
  1. AVASTIN [Suspect]
     Indication: ADENOCARCINOMA OF COLON
     Route: 042
     Dates: start: 20130413, end: 20130413

REACTIONS (2)
  - Confusional state [Recovered/Resolved]
  - Convulsion [Recovered/Resolved]
